FAERS Safety Report 10021716 (Version 1)
Quarter: 2014Q1

REPORT INFORMATION
  Report Type: Spontaneous
  Country: US (occurrence: None)
  Receive Date: 20140314
  Receipt Date: 20140314
  Transmission Date: 20141002
  Serious: Yes (Hospitalization)
  Sender: FDA-Public Use
  Company Number: None

PATIENT
  Age: 71 Year
  Sex: Male

DRUGS (16)
  1. GAZYVA [Suspect]
     Indication: LEUKAEMIA
     Route: 042
     Dates: start: 20140109, end: 20140109
  2. ALBUTEROL INHALATION [Concomitant]
  3. ALLOPURINOL [Concomitant]
  4. ATENOLOL [Concomitant]
  5. CLONIDINE [Concomitant]
  6. FLUCONAZOLE [Concomitant]
  7. FLUOROURACIL [Concomitant]
  8. FLUTICASONE-SALMETEROL [Concomitant]
  9. FLUTICASONE NASAK SPRAY [Concomitant]
  10. KETOCONAZOLE [Concomitant]
  11. LEVAQUIN [Concomitant]
  12. HYZAAR [Concomitant]
  13. MULTIVITAMIN [Suspect]
  14. OXYCODONE [Suspect]
  15. PAROXETINE [Suspect]
  16. SIMVASTATIN [Concomitant]

REACTIONS (2)
  - Chills [None]
  - Dyspnoea [None]
